FAERS Safety Report 4613971-5 (Version None)
Quarter: 2005Q1

REPORT INFORMATION
  Report Type: 
  Country: None (occurrence: None)
  Receive Date: 20050321
  Receipt Date: 20041216
  Transmission Date: 20050727
  Serious: Yes (Other)
  Sender: FDA-Public Use
  Company Number: FR-BRISTOL-MYERS SQUIBB COMPANY-12798633

PATIENT
  Age: 40 Year
  Sex: Male

DRUGS (6)
  1. PRAVASTATIN [Suspect]
     Indication: MYOCARDIAL INFARCTION
     Route: 048
     Dates: start: 20040101, end: 20040401
  2. QUESTRAN [Suspect]
  3. TRIATEC [Concomitant]
     Route: 048
  4. TEMERIT [Concomitant]
     Route: 048
  5. PLAVIX [Concomitant]
     Route: 048
  6. KARDEGIC [Concomitant]
     Route: 048

REACTIONS (4)
  - ALANINE AMINOTRANSFERASE INCREASED [None]
  - ASPARTATE AMINOTRANSFERASE INCREASED [None]
  - GAMMA-GLUTAMYLTRANSFERASE INCREASED [None]
  - HEPATOCELLULAR DAMAGE [None]
